FAERS Safety Report 6149532-9 (Version None)
Quarter: 2009Q2

REPORT INFORMATION
  Report Type: 
  Country: None (occurrence: None)
  Receive Date: 20090409
  Receipt Date: 20090406
  Transmission Date: 20091009
  Serious: Yes (Hospitalization)
  Sender: FDA-Public Use
  Company Number: JP-BAYER-200910438BYL

PATIENT
  Age: 73 Year
  Sex: Female
  Weight: 45 kg

DRUGS (8)
  1. NEXAVAR [Suspect]
     Indication: RENAL CELL CARCINOMA STAGE IV
     Dosage: UNIT DOSE: 200 MG
     Route: 048
     Dates: start: 20080813, end: 20080826
  2. NEXAVAR [Suspect]
     Dosage: UNIT DOSE: 200 MG
     Route: 048
     Dates: start: 20080827, end: 20090203
  3. TAGAMET [Concomitant]
     Route: 048
     Dates: start: 20080813, end: 20080909
  4. MEVALOTIN [Concomitant]
     Route: 048
     Dates: start: 20080813, end: 20080909
  5. PURSENNID [Concomitant]
     Route: 048
     Dates: start: 20080813, end: 20080909
  6. LAXOBERON [Concomitant]
     Dosage: 150 DROP/DAY
     Route: 048
     Dates: start: 20080813, end: 20080909
  7. NORVASC [Concomitant]
     Route: 048
     Dates: start: 20080813, end: 20080909
  8. RINDERON [Concomitant]
     Route: 048
     Dates: start: 20080813, end: 20080909

REACTIONS (2)
  - PALMAR-PLANTAR ERYTHRODYSAESTHESIA SYNDROME [None]
  - PLEURAL EFFUSION [None]
